FAERS Safety Report 22116214 (Version 1)
Quarter: 2023Q1

REPORT INFORMATION
  Report Type: Spontaneous
  Country: US (occurrence: None)
  Receive Date: 20230320
  Receipt Date: 20230320
  Transmission Date: 20230417
  Serious: No
  Sender: FDA-Public Use
  Company Number: None

PATIENT
  Sex: Male

DRUGS (1)
  1. TASIGNA [Suspect]
     Active Substance: NILOTINIB
     Dosage: OTHER QUANTITY : 400MG IN AM 200MG;?FREQUENCY : TWICE A DAY;?
     Route: 048

REACTIONS (3)
  - Product packaging difficult to open [None]
  - Product physical issue [None]
  - Skin laceration [None]
